FAERS Safety Report 23727810 (Version 3)
Quarter: 2024Q2

REPORT INFORMATION
  Report Type: Spontaneous
  Country: US (occurrence: US)
  Receive Date: 20240410
  Receipt Date: 20240619
  Transmission Date: 20240716
  Serious: No
  Sender: FDA-Public Use
  Company Number: US-BIOVITRUM-2024-US-005420

PATIENT
  Age: 77 Year
  Sex: Male

DRUGS (1)
  1. VONJO [Suspect]
     Active Substance: PACRITINIB
     Indication: Myelofibrosis
     Dosage: TWICE DAILY
     Route: 048
     Dates: start: 20240229

REACTIONS (6)
  - Diarrhoea [Unknown]
  - Asthenia [Unknown]
  - Full blood count abnormal [Unknown]
  - Product dose omission in error [Unknown]
  - Anaemia [Unknown]
  - Dyspepsia [Unknown]
